FAERS Safety Report 8794465 (Version 2)
Quarter: 2013Q2

REPORT INFORMATION
  Report Type: Report from Study
  Country: BO (occurrence: BO)
  Receive Date: 20120917
  Receipt Date: 20130422
  Transmission Date: 20140414
  Serious: Yes (Hospitalization, Other)
  Sender: FDA-Public Use
  Company Number: PHHY2012BO049574

PATIENT
  Age: 52 Year
  Sex: Female

DRUGS (2)
  1. GLIVEC [Suspect]
     Indication: CHRONIC MYELOID LEUKAEMIA
     Dosage: 400 MG, DAILY
     Route: 048
     Dates: start: 20120317, end: 20120901
  2. GLIVEC [Suspect]
     Dosage: UNK UKN, UNK
     Dates: start: 20120906

REACTIONS (23)
  - Calcinosis [Not Recovered/Not Resolved]
  - Uterine leiomyoma [Not Recovered/Not Resolved]
  - Adenomyosis [Unknown]
  - Gastrointestinal infection [Recovered/Resolved]
  - Haemorrhage [Not Recovered/Not Resolved]
  - White blood cell count decreased [Unknown]
  - Platelet count decreased [Unknown]
  - Vomiting [Unknown]
  - Diarrhoea [Not Recovered/Not Resolved]
  - Vaginal haemorrhage [Not Recovered/Not Resolved]
  - General physical health deterioration [Unknown]
  - Red blood cell count decreased [Unknown]
  - Haematocrit decreased [Unknown]
  - Reticulocyte count increased [Unknown]
  - Bone density decreased [Unknown]
  - Haemoglobin decreased [Unknown]
  - Gastrointestinal disorder [Unknown]
  - White blood cell count increased [Unknown]
  - Arthralgia [Not Recovered/Not Resolved]
  - Blood lactate dehydrogenase increased [Unknown]
  - Osteoporosis [Not Recovered/Not Resolved]
  - Dolichocolon [Not Recovered/Not Resolved]
  - Irritable bowel syndrome [Not Recovered/Not Resolved]
